FAERS Safety Report 4401217-2 (Version None)
Quarter: 2004Q3

REPORT INFORMATION
  Report Type: 
  Country: None (occurrence: None)
  Receive Date: 20040907
  Receipt Date: 20031229
  Transmission Date: 20050211
  Serious: No
  Sender: FDA-Public Use
  Company Number: US-BRISTOL-MYERS SQUIBB COMPANY-12467130

PATIENT
  Age: 40 Year
  Sex: Male
  Weight: 78 kg

DRUGS (3)
  1. COUMADIN [Suspect]
     Indication: ATRIAL FIBRILLATION
     Dosage: PATIENT TAKING COUMADIN 7.5MG DAILY-4 TIMES/WEEK + 5MG DAILY-3 TIMES/WEEK.
     Route: 048
  2. AMIODARONE HCL [Concomitant]
  3. SYNTHROID [Concomitant]

REACTIONS (1)
  - DEAFNESS [None]
